FAERS Safety Report 9350722 (Version 1)
Quarter: 2013Q2

REPORT INFORMATION
  Report Type: Report from Study
  Country: AR (occurrence: AR)
  Receive Date: 20130617
  Receipt Date: 20130617
  Transmission Date: 20140414
  Serious: Yes (Other)
  Sender: FDA-Public Use
  Company Number: PHHY2013AR061326

PATIENT
  Age: 66 Year
  Sex: Male

DRUGS (2)
  1. ONBREZ [Suspect]
     Indication: BRONCHITIS CHRONIC
     Dosage: 150 UG, QD
     Dates: start: 20130508
  2. ONBREZ [Suspect]
     Indication: OFF LABEL USE

REACTIONS (1)
  - Cerebrovascular accident [Recovered/Resolved]
